FAERS Safety Report 8767134 (Version 2)
Quarter: 2013Q2

REPORT INFORMATION
  Report Type: Spontaneous
  Country: US (occurrence: US)
  Receive Date: 20120904
  Receipt Date: 20130410
  Transmission Date: 20140414
  Serious: Yes (Other)
  Sender: FDA-Public Use
  Company Number: US-BAYER-2012-089455

PATIENT
  Age: 38 Year
  Sex: Female

DRUGS (2)
  1. MIRENA [Suspect]
     Indication: MENORRHAGIA
     Dosage: 20 MCG/24HR, CONT
     Route: 015
     Dates: start: 20111128, end: 20120731
  2. MIRENA [Suspect]
     Indication: CONTRACEPTION

REACTIONS (3)
  - Device dislocation [Recovered/Resolved]
  - Pelvic pain [Recovered/Resolved]
  - Vaginal haemorrhage [Recovered/Resolved]
